FAERS Safety Report 8165574 (Version 3)
Quarter: 2013Q1

REPORT INFORMATION
  Report Type: Spontaneous
  Country: US (occurrence: US)
  Receive Date: 20111003
  Receipt Date: 20130315
  Transmission Date: 20140127
  Serious: Yes (Other)
  Sender: FDA-Public Use
  Company Number: US-BAYER-2011-089597

PATIENT
  Age: 27 Year
  Sex: Female
  Weight: 125.1 kg

DRUGS (4)
  1. MIRENA [Suspect]
     Indication: CONTRACEPTION
     Dosage: 20 MCG/24HR, CONT
     Route: 015
     Dates: start: 20080122, end: 20110915
  2. LOVENOX [Concomitant]
     Indication: PULMONARY EMBOLISM
  3. LOVENOX [Concomitant]
     Indication: DEEP VEIN THROMBOSIS
  4. COUMADIN [Concomitant]

REACTIONS (3)
  - Pregnancy with contraceptive device [Recovered/Resolved]
  - Abortion spontaneous [Recovered/Resolved]
  - Drug ineffective [None]
